FAERS Safety Report 18000446 (Version 1)
Quarter: 2020Q3

REPORT INFORMATION
  Report Type: Spontaneous
  Country: CN (occurrence: CN)
  Receive Date: 20200709
  Receipt Date: 20200709
  Transmission Date: 20201103
  Serious: Yes (Life-Threatening, Other)
  Sender: FDA-Public Use
  Company Number: CN-PFIZER INC-2020261436

PATIENT
  Age: 71 Year
  Sex: Female
  Weight: 40 kg

DRUGS (2)
  1. DIFLUCAN [Suspect]
     Active Substance: FLUCONAZOLE
     Indication: MOUTH ULCERATION
     Dosage: 200 MG, 1X/DAY
     Route: 041
     Dates: start: 20200604
  2. DIFLUCAN [Suspect]
     Active Substance: FLUCONAZOLE
     Indication: FUNGAL INFECTION
     Dosage: 100 MG, 1X/DAY
     Route: 041
     Dates: start: 20200605, end: 20200608

REACTIONS (13)
  - Oxygen saturation decreased [Recovered/Resolved]
  - Dermatitis allergic [Recovering/Resolving]
  - Heart rate increased [Recovered/Resolved]
  - Drug hypersensitivity [Recovering/Resolving]
  - Erythema multiforme [Recovering/Resolving]
  - Oral mucosa erosion [Unknown]
  - Papule [Unknown]
  - Chest discomfort [Recovered/Resolved]
  - Laryngeal oedema [Unknown]
  - Swelling face [Recovering/Resolving]
  - Tachypnoea [Recovered/Resolved]
  - Hypotension [Recovering/Resolving]
  - Pruritus [Recovering/Resolving]

NARRATIVE: CASE EVENT DATE: 20200605
